FAERS Safety Report 14999165 (Version 2)
Quarter: 2018Q3

REPORT INFORMATION
  Report Type: Spontaneous
  Country: GB (occurrence: GB)
  Receive Date: 20180612
  Receipt Date: 20180726
  Transmission Date: 20181010
  Serious: Yes (Other)
  Sender: FDA-Public Use
  Company Number: GB-TEVA-2018-GB-905405

PATIENT
  Age: 42 Year
  Sex: Female
  Weight: 99 kg

DRUGS (7)
  1. AMLODIPINE [Concomitant]
     Active Substance: AMLODIPINE BESYLATE
     Dosage: 5 MILLIGRAM DAILY;
     Dates: start: 20180129
  2. ATORVASTATIN CALCIUM. [Suspect]
     Active Substance: ATORVASTATIN CALCIUM
     Route: 048
  3. EZETIMIBE. [Concomitant]
     Active Substance: EZETIMIBE
     Dosage: 10 MILLIGRAM DAILY;
     Dates: start: 20180412
  4. HYLO?FORTE [Concomitant]
     Active Substance: HYALURONATE SODIUM
     Dosage: 6 GTT DAILY; TO BOTH EYES.
     Route: 047
     Dates: start: 20180129
  5. EVOREL [Concomitant]
     Dates: start: 20180129
  6. COCODAMOL [Concomitant]
     Active Substance: ACETAMINOPHEN\CODEINE PHOSPHATE
     Dosage: 1?2 , 30MG/500MG
     Dates: start: 20180129
  7. RAMIPRIL. [Concomitant]
     Active Substance: RAMIPRIL
     Dosage: 10 MILLIGRAM DAILY;
     Dates: start: 20180129

REACTIONS (4)
  - Nasal cyst [Recovered/Resolved]
  - Nasal discomfort [Recovered/Resolved]
  - Nasal congestion [Recovered/Resolved]
  - Condition aggravated [Unknown]
